FAERS Safety Report 4971432-8 (Version None)
Quarter: 2006Q2

REPORT INFORMATION
  Report Type: 
  Country: None (occurrence: None)
  Receive Date: 20060406
  Receipt Date: 20060328
  Transmission Date: 20061013
  Serious: Yes (Death)
  Sender: FDA-Public Use
  Company Number: 2006-03-1144

PATIENT
  Age: 80 Year
  Sex: Male

DRUGS (5)
  1. FLUTAMIDE [Suspect]
     Indication: PROSTATE CANCER
     Dosage: 375 MG QD ORAL
     Route: 048
     Dates: start: 20050625, end: 20060304
  2. LEUPRORELIN ACETATE INJECTABLE [Suspect]
     Indication: PROSTATE CANCER
     Dosage: 3.75 MG SUBCUTANEOUS
     Route: 058
  3. NAFTOPIDIL [Concomitant]
  4. FLAVOXATE HCL [Concomitant]
  5. OXYBUTYNIN HYDROCHLORIDE [Concomitant]

REACTIONS (1)
  - HEPATIC NEOPLASM MALIGNANT [None]
